FAERS Safety Report 7675696-1 (Version None)
Quarter: 2011Q3

REPORT INFORMATION
  Report Type: 
  Country: None (occurrence: None)
  Receive Date: 20110810
  Receipt Date: 20110729
  Transmission Date: 20111222
  Serious: Yes (Disabling)
  Sender: FDA-Public Use
  Company Number: US-ASTRAZENECA-2011SE07849

PATIENT
  Age: 54 Year
  Sex: Male

DRUGS (9)
  1. MAGNYL [Suspect]
  2. FUROSEMIDE [Suspect]
  3. CRESTOR [Suspect]
     Route: 048
  4. ONGLYZA [Suspect]
     Indication: TYPE 2 DIABETES MELLITUS
     Route: 048
     Dates: start: 20101110, end: 20101204
  5. METFORMIN HCL [Suspect]
  6. ENALAPRIL MALEATE [Suspect]
  7. DIGOXIN [Suspect]
  8. POTASSIUM CHLORIDE [Suspect]
  9. INSULATARD NPH HUMAN [Suspect]

REACTIONS (3)
  - HEADACHE [None]
  - FLUID RETENTION [None]
  - WEIGHT INCREASED [None]
